FAERS Safety Report 17203568 (Version 5)
Quarter: 2020Q2

REPORT INFORMATION
  Report Type: Spontaneous
  Country: US (occurrence: US)
  Receive Date: 20191226
  Receipt Date: 20200514
  Transmission Date: 20200713
  Serious: Yes (Other)
  Sender: FDA-Public Use
  Company Number: US-CATALYST PHARMACEUTICALS, INC-2019CAT00422

PATIENT
  Age: 46 Year
  Sex: Female
  Weight: 63.49 kg

DRUGS (14)
  1. FIRDAPSE [Suspect]
     Active Substance: AMIFAMPRIDINE
     Dosage: 10 MG, 2X/DAY (MORNING AND AFTERNOON)
     Dates: start: 2019, end: 2019
  2. FIRDAPSE [Suspect]
     Active Substance: AMIFAMPRIDINE
     Dosage: 20-40 MG DAILY
     Route: 048
     Dates: start: 2020, end: 20200203
  3. AMBIEN [Concomitant]
     Active Substance: ZOLPIDEM TARTRATE
     Dosage: UNK
     Dates: end: 2019
  4. MEDICAL MARIJUANA [Concomitant]
     Active Substance: CANNABIS SATIVA SUBSP. INDICA TOP
  5. FIRDAPSE [Suspect]
     Active Substance: AMIFAMPRIDINE
     Indication: MYASTHENIC SYNDROME
     Dosage: 5 MG, 4X/DAY
     Dates: start: 201908, end: 2019
  6. CBD OIL [Concomitant]
     Active Substance: CANNABIDIOL\HERBALS
  7. FIRDAPSE [Suspect]
     Active Substance: AMIFAMPRIDINE
     Dosage: 20 MG, 4X/DAY
  8. ADDERALL [Concomitant]
     Active Substance: AMPHETAMINE ASPARTATE\AMPHETAMINE SULFATE\DEXTROAMPHETAMINE SACCHARATE\DEXTROAMPHETAMINE SULFATE
  9. FIRDAPSE [Suspect]
     Active Substance: AMIFAMPRIDINE
     Dosage: 20 MG, 2X/DAY (5:00AM AND 3:00PM)
     Dates: start: 2019, end: 2019
  10. FIRDAPSE [Suspect]
     Active Substance: AMIFAMPRIDINE
     Dosage: 20 MG, 1X/DAY (MORNING)
     Dates: start: 2019
  11. FIRDAPSE [Suspect]
     Active Substance: AMIFAMPRIDINE
     Dosage: 10 MG, 2X/DAY (AFTERNOON, EVENING)
     Dates: start: 2019
  12. FIRDAPSE [Suspect]
     Active Substance: AMIFAMPRIDINE
     Dosage: 10 MG, 1X/DAY (9:00PM)
     Dates: start: 2019, end: 2019
  13. FIRDAPSE [Suspect]
     Active Substance: AMIFAMPRIDINE
     Dosage: 60 MG DAILY
     Route: 048
     Dates: start: 20190803, end: 202002
  14. MODAFINIL. [Concomitant]
     Active Substance: MODAFINIL

REACTIONS (31)
  - Therapy cessation [Not Recovered/Not Resolved]
  - Peripheral coldness [Recovered/Resolved]
  - Cough [Not Recovered/Not Resolved]
  - Decreased appetite [Recovered/Resolved]
  - Gait disturbance [Not Recovered/Not Resolved]
  - Headache [Recovered/Resolved]
  - Unevaluable event [Not Recovered/Not Resolved]
  - Gastrointestinal disorder [Unknown]
  - Muscle disorder [Not Recovered/Not Resolved]
  - Abdominal pain upper [Recovering/Resolving]
  - Movement disorder [Recovered/Resolved]
  - Fatigue [Unknown]
  - Hypoaesthesia [Recovered/Resolved]
  - Autoimmune thyroiditis [Not Recovered/Not Resolved]
  - Rectal haemorrhage [Recovered/Resolved]
  - Blood test abnormal [Recovered/Resolved]
  - Malaise [Recovering/Resolving]
  - Product dose omission [Recovered/Resolved]
  - Paraesthesia [Recovered/Resolved]
  - Intentional product use issue [Recovered/Resolved]
  - Hyperhidrosis [Recovered/Resolved]
  - Nasopharyngitis [Unknown]
  - Coronavirus infection [Unknown]
  - Back pain [Recovering/Resolving]
  - Blood creatine phosphokinase increased [Recovered/Resolved]
  - Dizziness [Recovered/Resolved]
  - Constipation [Not Recovered/Not Resolved]
  - Nausea [Recovered/Resolved]
  - Bone pain [Unknown]
  - Paraesthesia oral [Recovered/Resolved]
  - Hypoaesthesia oral [Recovered/Resolved]

NARRATIVE: CASE EVENT DATE: 201610
